FAERS Safety Report 6018957-4 (Version None)
Quarter: 2008Q4

REPORT INFORMATION
  Report Type: 
  Country: None (occurrence: None)
  Receive Date: 20081221
  Receipt Date: 20081221
  Transmission Date: 20090506
  Serious: Yes (Hospitalization)
  Sender: FDA-Public Use
  Company Number: None

PATIENT
  Sex: Male
  Weight: 112.72 kg

DRUGS (1)
  1. MITOXANTRONE HYDROCHLORIDE [Suspect]
     Dosage: 72 MG

REACTIONS (2)
  - ACUTE LEUKAEMIA [None]
  - OEDEMA PERIPHERAL [None]
